FAERS Safety Report 22602762 (Version 1)
Quarter: 2023Q2

REPORT INFORMATION
  Report Type: Spontaneous
  Country: US (occurrence: US)
  Receive Date: 20230615
  Receipt Date: 20230615
  Transmission Date: 20230721
  Serious: No
  Sender: FDA-Public Use
  Company Number: US-AMGEN-USASP2023102579

PATIENT

DRUGS (5)
  1. TRASTUZUMAB [Suspect]
     Active Substance: TRASTUZUMAB
     Indication: HER2 positive breast cancer
     Dosage: 6 MILLIGRAM/KG
     Route: 065
  2. PERTUZUMAB [Concomitant]
     Active Substance: PERTUZUMAB
     Indication: HER2 positive breast cancer
     Dosage: 420 MILLIGRAM
     Route: 065
  3. ALPELISIB [Concomitant]
     Active Substance: ALPELISIB
     Indication: HER2 positive breast cancer
     Dosage: 300 MILLIGRAM
     Route: 065
  4. ALPELISIB [Concomitant]
     Active Substance: ALPELISIB
     Dosage: 250 MILLIGRAM, QD
     Route: 065
  5. ALPELISIB [Concomitant]
     Active Substance: ALPELISIB
     Dosage: 200 MILLIGRAM, QD
     Route: 065

REACTIONS (5)
  - Hyperglycaemia [Unknown]
  - Dermatitis acneiform [Unknown]
  - Diarrhoea [Unknown]
  - Decreased appetite [Unknown]
  - Off label use [Unknown]
